FAERS Safety Report 8503203-X (Version None)
Quarter: 2012Q3

REPORT INFORMATION
  Report Type: 
  Country: None (occurrence: None)
  Receive Date: 20120711
  Receipt Date: 20120702
  Transmission Date: 20120928
  Serious: Yes (Death, Hospitalization)
  Sender: FDA-Public Use
  Company Number: JP-AMGEN-JPNCT2011044521

PATIENT
  Age: 74 Year
  Sex: Female
  Weight: 45 kg

DRUGS (18)
  1. HACHIAZULE [Concomitant]
     Indication: PROPHYLAXIS
     Route: 049
     Dates: start: 20110106
  2. TS 1 [Concomitant]
     Indication: COLORECTAL CANCER
     Route: 048
     Dates: start: 20110428, end: 20110512
  3. MAXIPIME [Concomitant]
     Indication: INFECTION
     Route: 042
     Dates: start: 20110514
  4. IRINOTECAN HYDROCHLORIDE [Suspect]
     Route: 041
     Dates: start: 20110616, end: 20110630
  5. HIRUDOID [Concomitant]
     Indication: PROPHYLAXIS
     Route: 062
     Dates: start: 20110427
  6. ACETAMINOPHEN [Concomitant]
     Route: 048
     Dates: start: 20110513
  7. ALENDRONATE SODIUM [Concomitant]
     Indication: OSTEOPOROSIS
     Dosage: 35 MG, QWK
     Route: 048
  8. FLUMARIN [Concomitant]
     Indication: INFECTION
     Route: 042
     Dates: start: 20110514
  9. IRINOTECAN HYDROCHLORIDE [Suspect]
     Indication: COLORECTAL CANCER
     Route: 041
     Dates: start: 20110428, end: 20110428
  10. OLMESARTAN MEDOXOMIL [Concomitant]
     Indication: HYPERTENSION
     Dosage: 20 MG, UNK
     Route: 048
  11. MINOCYCLINE HYDROCHLORIDE [Concomitant]
     Indication: INFECTION
     Dosage: 100 MG, UNK
     Route: 048
     Dates: start: 20110427, end: 20110513
  12. PANITUMUMAB [Suspect]
     Dosage: UNK, Q2WK
     Route: 041
     Dates: start: 20110616, end: 20110630
  13. TS 1 [Concomitant]
     Route: 048
     Dates: start: 20110616, end: 20110630
  14. PANITUMUMAB [Suspect]
     Indication: COLORECTAL CANCER
     Dosage: UNK, Q2WK
     Route: 041
     Dates: start: 20110428, end: 20110428
  15. PRAVASTATIN [Concomitant]
     Indication: DYSLIPIDAEMIA
     Dosage: 10 MG, UNK
     Route: 048
  16. ONEALFA [Concomitant]
     Route: 048
  17. FAMOTIDINE [Concomitant]
     Indication: GASTROOESOPHAGEAL REFLUX DISEASE
     Dosage: 20 MG, UNK
     Route: 042
     Dates: start: 20110514, end: 20110515
  18. LOCOID [Concomitant]
     Indication: PROPHYLAXIS
     Route: 062

REACTIONS (7)
  - HYPOALBUMINAEMIA [None]
  - DIARRHOEA [None]
  - HEPATIC FAILURE [None]
  - ANAEMIA [None]
  - ILEUS [None]
  - FEBRILE NEUTROPENIA [None]
  - STOMATITIS [None]
